FAERS Safety Report 7298757-8 (Version None)
Quarter: 2011Q1

REPORT INFORMATION
  Report Type: 
  Country: None (occurrence: None)
  Receive Date: 20110209
  Receipt Date: 20110124
  Transmission Date: 20110831
  Serious: Yes (Life-Threatening, Hospitalization, Other)
  Sender: FDA-Public Use
  Company Number: 2011MA000628

PATIENT
  Age: 4 Year
  Sex: Female

DRUGS (1)
  1. TRAMADOL HYDROCHLORIDE [Suspect]
     Indication: OVERDOSE
     Dosage: PO
     Route: 048

REACTIONS (18)
  - FEAR [None]
  - TACHYCARDIA [None]
  - SEPSIS [None]
  - SOMNOLENCE [None]
  - CYANOSIS [None]
  - HALLUCINATION [None]
  - OROPHARYNGEAL PAIN [None]
  - CARDIAC MURMUR [None]
  - GRAND MAL CONVULSION [None]
  - TOXICITY TO VARIOUS AGENTS [None]
  - RESPIRATORY DEPRESSION [None]
  - MIOSIS [None]
  - RESPIRATORY ACIDOSIS [None]
  - COMA [None]
  - TREMOR [None]
  - PYREXIA [None]
  - BRADYPNOEA [None]
  - AGITATION [None]
